FAERS Safety Report 15201510 (Version 1)
Quarter: 2018Q3

REPORT INFORMATION
  Report Type: Spontaneous
  Country: None (occurrence: GB)
  Receive Date: 20180726
  Receipt Date: 20180726
  Transmission Date: 20181010
  Serious: Yes (Death)
  Sender: FDA-Public Use
  Company Number: GB-ORION CORPORATION ORION PHARMA-TREX2018-2080

PATIENT

DRUGS (1)
  1. METHOTREXATE. [Suspect]
     Active Substance: METHOTREXATE
     Indication: ARTHRITIS
     Dosage: LOW DOSE, MEAN 9.3, RANGE 5?17.5 MG
     Route: 065

REACTIONS (3)
  - Toxicity to various agents [Unknown]
  - Pancytopenia [Fatal]
  - Pneumonia [Unknown]
